FAERS Safety Report 7468013-3 (Version None)
Quarter: 2011Q2

REPORT INFORMATION
  Report Type: 
  Country: None (occurrence: None)
  Receive Date: 20110509
  Receipt Date: 20110504
  Transmission Date: 20111010
  Serious: Yes (Other)
  Sender: FDA-Public Use
  Company Number: US-PFIZER INC-2011096594

PATIENT
  Sex: Female
  Weight: 47.166 kg

DRUGS (1)
  1. LYRICA [Suspect]
     Indication: BACK PAIN
     Dosage: 75 MG, UNK
     Route: 048
     Dates: start: 20110503, end: 20110504

REACTIONS (9)
  - MEMORY IMPAIRMENT [None]
  - VISION BLURRED [None]
  - DRY MOUTH [None]
  - MICTURITION DISORDER [None]
  - MIGRAINE [None]
  - RESTLESSNESS [None]
  - FUMBLING [None]
  - INSOMNIA [None]
  - EUPHORIC MOOD [None]
